FAERS Safety Report 8801631 (Version 3)
Quarter: 2013Q2

REPORT INFORMATION
  Report Type: Spontaneous
  Country: US (occurrence: US)
  Receive Date: 20120921
  Receipt Date: 20130613
  Transmission Date: 20140414
  Serious: Yes (Hospitalization)
  Sender: FDA-Public Use
  Company Number: US-BAYER-2012-096939

PATIENT
  Age: 30 Year
  Sex: Female
  Weight: 88.57 kg

DRUGS (10)
  1. YAZ [Suspect]
     Dosage: UNK
     Dates: start: 201007, end: 201202
  2. GIANVI [Suspect]
     Dosage: UNK
     Dates: start: 201007, end: 201202
  3. DEXILANT [Concomitant]
     Indication: DYSPEPSIA
     Dosage: 60 MG, UNK
     Dates: start: 2009
  4. DEXILANT [Concomitant]
     Indication: GASTROOESOPHAGEAL REFLUX DISEASE
  5. TYLENOL [Concomitant]
  6. PHENTERMINE [Concomitant]
     Indication: WEIGHT LOSS DIET
     Dosage: UNK
     Dates: start: 201010, end: 201304
  7. MULTIVITAMIN [Concomitant]
     Dosage: DAILY
     Dates: start: 2011
  8. ZYRTEC [Concomitant]
     Dosage: DAILY
     Dates: start: 2010
  9. PROCHLORPERAZINE MALEATE [Concomitant]
     Dosage: 10 MG, UNK
  10. TRAMADOL HYDROCHLORIDE [Concomitant]
     Dosage: 50 MG, UNK

REACTIONS (5)
  - Deep vein thrombosis [None]
  - Pulmonary embolism [None]
  - Pain [None]
  - Injury [None]
  - Pain in extremity [None]
